FAERS Safety Report 4621478-4 (Version None)
Quarter: 2005Q1

REPORT INFORMATION
  Report Type: 
  Country: None (occurrence: None)
  Receive Date: 20050328
  Receipt Date: 20050311
  Transmission Date: 20050727
  Serious: Yes (Hospitalization)
  Sender: FDA-Public Use
  Company Number: 2005-BP-01903BP

PATIENT
  Age: 37 Year
  Sex: Female
  Weight: 61.7 kg

DRUGS (5)
  1. MOBIC [Suspect]
     Indication: RHEUMATOID ARTHRITIS
     Dosage: 15 MG (15 MG), PO
     Route: 048
     Dates: start: 20040927, end: 20041203
  2. MOBIC [Suspect]
     Indication: TENDONITIS
     Dosage: 15 MG (15 MG), PO
     Route: 048
     Dates: start: 20040927, end: 20041203
  3. DILANTIN [Concomitant]
  4. INSULIN [Concomitant]
  5. VASOTEC [Concomitant]

REACTIONS (21)
  - ANTINUCLEAR ANTIBODY POSITIVE [None]
  - ARTERIOPATHIC DISEASE [None]
  - ASTHENIA [None]
  - BACK PAIN [None]
  - BLOOD IMMUNOGLOBULIN G INCREASED [None]
  - BRAIN STEM INFARCTION [None]
  - CAROTID ARTERY STENOSIS [None]
  - CEREBROVASCULAR ACCIDENT [None]
  - COAGULOPATHY [None]
  - DIABETIC MICROANGIOPATHY [None]
  - DIFFICULTY IN WALKING [None]
  - DIPLOPIA [None]
  - EPILEPSY [None]
  - HEADACHE [None]
  - HEMIPARESIS [None]
  - RADIATION INJURY [None]
  - SUBCLAVIAN STEAL SYNDROME [None]
  - VERTEBRAL ARTERY OCCLUSION [None]
  - VERTEBRAL ARTERY STENOSIS [None]
  - VISUAL FIELD DEFECT [None]
  - VITH NERVE PARALYSIS [None]
